FAERS Safety Report 21947369 (Version 1)
Quarter: 2023Q1

REPORT INFORMATION
  Report Type: Spontaneous
  Country: JP (occurrence: JP)
  Receive Date: 20230202
  Receipt Date: 20230202
  Transmission Date: 20230418
  Serious: Yes (Death, Hospitalization, Other)
  Sender: FDA-Public Use
  Company Number: JP-SAKK-2023SA034780AA

PATIENT
  Age: 85 Year
  Sex: Male
  Weight: 46 kg

DRUGS (6)
  1. PLAVIX [Suspect]
     Active Substance: CLOPIDOGREL BISULFATE
     Indication: Angina pectoris
     Dosage: 75 MG, QD
     Route: 048
     Dates: end: 20220906
  2. VYNDAQEL [Suspect]
     Active Substance: TAFAMIDIS MEGLUMINE
     Indication: Cardiac amyloidosis
     Dosage: 80 MG, QD
     Route: 048
     Dates: start: 20220114, end: 20220906
  3. WARFARIN POTASSIUM [Suspect]
     Active Substance: WARFARIN POTASSIUM
     Indication: Atrial fibrillation
     Dosage: 1.75 MG, QD
     Route: 048
     Dates: end: 20220906
  4. AZOSEMIDE [Concomitant]
     Active Substance: AZOSEMIDE
     Indication: Cardiac failure congestive
     Dosage: UNK
     Route: 048
  5. SPIRONOLACTONE [Concomitant]
     Active Substance: SPIRONOLACTONE
     Indication: Cardiac failure congestive
     Dosage: UNK
     Route: 048
  6. FUROSEMIDE [Concomitant]
     Active Substance: FUROSEMIDE
     Indication: Cardiac failure congestive
     Dosage: UNK
     Route: 048

REACTIONS (3)
  - Fall [Fatal]
  - Depressed level of consciousness [Fatal]
  - Subdural haematoma [Fatal]

NARRATIVE: CASE EVENT DATE: 20220906
